FAERS Safety Report 10267044 (Version 4)
Quarter: 2014Q3

REPORT INFORMATION
  Report Type: Spontaneous
  Country: US (occurrence: US)
  Receive Date: 20140630
  Receipt Date: 20140728
  Transmission Date: 20150326
  Serious: Yes (Other)
  Sender: FDA-Public Use
  Company Number: US-ROCHE-1423960

PATIENT
  Age: 65 Year
  Sex: Female

DRUGS (7)
  1. LUCENTIS [Suspect]
     Active Substance: RANIBIZUMAB
     Indication: DIABETIC RETINAL OEDEMA
     Dosage: LAST INJECTION WAS ADMINISTERED IN 19/MAY/2014?LEFT EYE?EVERY 4-6 WEEKS
     Route: 050
     Dates: start: 20120127
  2. METFORMIN [Concomitant]
     Active Substance: METFORMIN HYDROCHLORIDE
     Route: 065
  3. GLIPIZIDE. [Concomitant]
     Active Substance: GLIPIZIDE
     Route: 065
  4. NOVOLOG [Concomitant]
     Active Substance: INSULIN ASPART
  5. AMBIEN CR [Concomitant]
     Active Substance: ZOLPIDEM TARTRATE
     Dosage: EVERY EVENING
     Route: 065
  6. LANTUS SOLOSTAR [Concomitant]
     Active Substance: INSULIN GLARGINE
     Dosage: EVERY EVENING
     Route: 065
  7. LORAZEPAM. [Concomitant]
     Active Substance: LORAZEPAM
     Dosage: EVERY EVENING
     Route: 048

REACTIONS (17)
  - Vitreous degeneration [Unknown]
  - Visual field defect [Unknown]
  - Colour blindness acquired [Unknown]
  - Renal impairment [Unknown]
  - Neuropathy peripheral [Unknown]
  - Angiogram retina abnormal [Unknown]
  - Visual acuity reduced [Unknown]
  - Blood creatinine increased [Unknown]
  - Macular ischaemia [Unknown]
  - Macular fibrosis [Unknown]
  - Emotional distress [Unknown]
  - Glomerular filtration rate decreased [Unknown]
  - Blindness [Unknown]
  - Renal failure [Unknown]
  - Diabetic retinopathy [Unknown]
  - Cataract nuclear [Unknown]
  - Sleep apnoea syndrome [Unknown]

NARRATIVE: CASE EVENT DATE: 20140620
